FAERS Safety Report 5054969-5 (Version None)
Quarter: 2006Q3

REPORT INFORMATION
  Report Type: 
  Country: None (occurrence: None)
  Receive Date: 20060719
  Receipt Date: 20060712
  Transmission Date: 20061208
  Serious: Yes (Other)
  Sender: FDA-Public Use
  Company Number: US-GLAXOSMITHKLINE-A0612046A

PATIENT
  Age: 69 Year
  Sex: Male

DRUGS (5)
  1. ESKALITH [Suspect]
     Indication: BIPOLAR I DISORDER
     Dosage: 300MG PER DAY
     Route: 048
     Dates: start: 19800101
  2. POTASSIUM [Concomitant]
  3. FUROSEMIDE [Concomitant]
  4. GLUCOPHAGE [Concomitant]
  5. LIPITOR [Concomitant]

REACTIONS (1)
  - RENAL FAILURE [None]
